FAERS Safety Report 5705290-0 (Version None)
Quarter: 2008Q2

REPORT INFORMATION
  Report Type: 
  Country: None (occurrence: None)
  Receive Date: 20080410
  Receipt Date: 20080403
  Transmission Date: 20081010
  Serious: Yes (Death, Hospitalization)
  Sender: FDA-Public Use
  Company Number: CERZ-1000166

PATIENT
  Age: 21 Month
  Sex: Male
  Weight: 8 kg

DRUGS (1)
  1. CEREZYME [Suspect]
     Indication: GAUCHER'S DISEASE
     Dosage: 60 U/KG, Q2W, INTRAVENOUS
     Route: 042
     Dates: start: 20070630, end: 20080220

REACTIONS (7)
  - BRONCHOPNEUMONIA [None]
  - CARDIAC FAILURE [None]
  - CYANOSIS [None]
  - HYPOREFLEXIA [None]
  - HYPOTONIA [None]
  - PULMONARY OEDEMA [None]
  - RESPIRATORY DISTRESS [None]
